FAERS Safety Report 4838040-0 (Version None)
Quarter: 2005Q4

REPORT INFORMATION
  Report Type: 
  Country: None (occurrence: None)
  Receive Date: 20051128
  Receipt Date: 20051114
  Transmission Date: 20060501
  Serious: Yes (Death, Other)
  Sender: FDA-Public Use
  Company Number: TR-AVENTIS-200514427EU

PATIENT
  Age: 46 Year
  Sex: Female

DRUGS (2)
  1. ENOXAPARIN [Suspect]
     Indication: INTERNATIONAL NORMALISED RATIO
  2. COUMADIN [Suspect]
     Indication: INTERNATIONAL NORMALISED RATIO

REACTIONS (8)
  - ABDOMINAL COMPARTMENT SYNDROME [None]
  - ABDOMINAL PAIN [None]
  - HAEMOGLOBIN DECREASED [None]
  - MUSCLE HAEMORRHAGE [None]
  - OLIGURIA [None]
  - PERITONEAL HAEMORRHAGE [None]
  - SUDDEN DEATH [None]
  - TACHYCARDIA [None]
